FAERS Safety Report 18978814 (Version 1)
Quarter: 2021Q1

REPORT INFORMATION
  Report Type: Spontaneous
  Country: US (occurrence: US)
  Receive Date: 20210308
  Receipt Date: 20210308
  Transmission Date: 20210420
  Serious: Yes (Death, Other)
  Sender: FDA-Public Use
  Company Number: US-AMGEN-USASP2021033428

PATIENT

DRUGS (2)
  1. CINACALCET HCL [Suspect]
     Active Substance: CINACALCET HYDROCHLORIDE
     Indication: HYPERPARATHYROIDISM
     Dosage: UNK
     Route: 065
  2. SODIUM THIOSULPHATE [Concomitant]
     Active Substance: SODIUM THIOSULFATE
     Dosage: UNK

REACTIONS (2)
  - Death [Fatal]
  - Amputation [Unknown]
